FAERS Safety Report 25621938 (Version 2)
Quarter: 2025Q3

REPORT INFORMATION
  Report Type: Spontaneous
  Country: US (occurrence: US)
  Receive Date: 20250730
  Receipt Date: 20250820
  Transmission Date: 20251021
  Serious: No
  Sender: APOTEX
  Company Number: US-APOTEX-2025AP010012

PATIENT
  Sex: Female

DRUGS (1)
  1. KETOROLAC TROMETHAMINE [Suspect]
     Active Substance: KETOROLAC TROMETHAMINE
     Indication: Product used for unknown indication
     Route: 065
     Dates: start: 20250708

REACTIONS (3)
  - Product dose omission issue [Unknown]
  - Product label issue [Unknown]
  - Product closure issue [Unknown]

NARRATIVE: CASE EVENT DATE: 20250618
